FAERS Safety Report 21012056 (Version 1)
Quarter: 2022Q2

REPORT INFORMATION
  Report Type: Report from Study
  Country: US (occurrence: US)
  Receive Date: 20220627
  Receipt Date: 20220627
  Transmission Date: 20220720
  Serious: Yes (Disabling, Other)
  Sender: FDA-Public Use
  Company Number: US-UCBSA-2022035668

PATIENT
  Sex: Female

DRUGS (2)
  1. LACOSAMIDE [Suspect]
     Active Substance: LACOSAMIDE
     Indication: Product used for unknown indication
     Dosage: 150 MILLIGRAM, 2X/DAY (BID)
     Route: 048
  2. NAYZILAM [Suspect]
     Active Substance: MIDAZOLAM
     Indication: Product used for unknown indication
     Dosage: 5 MILLIGRAM, AS NEEDED (PRN)
     Route: 045

REACTIONS (4)
  - Disability [Unknown]
  - Adverse drug reaction [Unknown]
  - Inability to afford medication [Unknown]
  - Therapy interrupted [Unknown]
